FAERS Safety Report 17916226 (Version 2)
Quarter: 2020Q4

REPORT INFORMATION
  Report Type: Not Available
  Country: US (occurrence: US)
  Receive Date: 20200619
  Receipt Date: 20201014
  Transmission Date: 20210113
  Serious: No
  Sender: FDA-Public Use
  Company Number: US-NEUROCRINE BIOSCIENCES INC.-2020NBI01940

PATIENT
  Age: 69 Year
  Sex: Female

DRUGS (2)
  1. ABILIFY [Concomitant]
     Active Substance: ARIPIPRAZOLE
  2. INGREZZA [Suspect]
     Active Substance: VALBENAZINE
     Indication: TARDIVE DYSKINESIA
     Route: 048
     Dates: start: 20171220

REACTIONS (1)
  - Abdominal discomfort [Unknown]
